FAERS Safety Report 15150206 (Version 1)
Quarter: 2018Q3

REPORT INFORMATION
  Report Type: Spontaneous
  Country: AT (occurrence: AT)
  Receive Date: 20180716
  Receipt Date: 20180716
  Transmission Date: 20181010
  Serious: Yes (Hospitalization)
  Sender: FDA-Public Use
  Company Number: AT-US WORLDMEDS, LLC-STA_00017005

PATIENT
  Sex: Male
  Weight: 80 kg

DRUGS (4)
  1. MADOPAR 100/25MG [Concomitant]
     Indication: PRODUCT USED FOR UNKNOWN INDICATION
  2. LEPONEX 25 MG [Concomitant]
     Active Substance: CLOZAPINE
     Indication: PRODUCT USED FOR UNKNOWN INDICATION
  3. APOMORPHINE HYDROCHLORIDE [Suspect]
     Active Substance: APOMORPHINE HYDROCHLORIDE
     Indication: PARKINSON^S DISEASE
     Dosage: FROM 6.00 AM UNTIL 09.00 PM, 12 MG BOLUS
     Route: 058
     Dates: start: 200906
  4. MADOPAR CR [Concomitant]
     Active Substance: BENSERAZIDE HYDROCHLORIDE\LEVODOPA
     Indication: PRODUCT USED FOR UNKNOWN INDICATION

REACTIONS (7)
  - Hallucination, visual [Recovered/Resolved]
  - Sleep disorder [Not Recovered/Not Resolved]
  - Injection site inflammation [Unknown]
  - Somnolence [Not Recovered/Not Resolved]
  - Injection site necrosis [Not Recovered/Not Resolved]
  - Injection site nodule [Not Recovered/Not Resolved]
  - Paraesthesia [Not Recovered/Not Resolved]
